FAERS Safety Report 19430953 (Version 1)
Quarter: 2021Q2

REPORT INFORMATION
  Report Type: Spontaneous
  Country: US (occurrence: US)
  Receive Date: 20210618
  Receipt Date: 20210618
  Transmission Date: 20210717
  Serious: No
  Sender: FDA-Public Use
  Company Number: US-ROCHE-2808444

PATIENT
  Sex: Female

DRUGS (14)
  1. OLMESARTAN MEDOXOMIL. [Concomitant]
     Active Substance: OLMESARTAN MEDOXOMIL
  2. ACTEMRA [Suspect]
     Active Substance: TOCILIZUMAB
     Indication: RHEUMATOID ARTHRITIS
     Dosage: ACTEMRA ACT PEN 162 MG/0.9ML
     Route: 058
  3. OMEPRAZOLE. [Concomitant]
     Active Substance: OMEPRAZOLE
  4. VITAMIN D3 [Concomitant]
     Active Substance: CHOLECALCIFEROL
  5. BIOTIN [Concomitant]
     Active Substance: BIOTIN
  6. FOLIC ACID. [Concomitant]
     Active Substance: FOLIC ACID
  7. IRON [Concomitant]
     Active Substance: IRON
  8. METHOTREXATE. [Concomitant]
     Active Substance: METHOTREXATE
  9. GABAPENTIN. [Concomitant]
     Active Substance: GABAPENTIN
  10. MYRBETRIQ [Concomitant]
     Active Substance: MIRABEGRON
  11. VITAMIN E [Concomitant]
     Active Substance: .ALPHA.-TOCOPHEROL
  12. ACTEMRA [Suspect]
     Active Substance: TOCILIZUMAB
  13. MULTIVITAMIN [Concomitant]
     Active Substance: VITAMINS
  14. TYLENOL [Concomitant]
     Active Substance: ACETAMINOPHEN

REACTIONS (1)
  - Injection site pruritus [Unknown]
